FAERS Safety Report 9280773 (Version 1)
Quarter: 2013Q2

REPORT INFORMATION
  Report Type: Spontaneous
  Country: GB (occurrence: GB)
  Receive Date: 20130509
  Receipt Date: 20130509
  Transmission Date: 20140414
  Serious: Yes (Hospitalization)
  Sender: FDA-Public Use
  Company Number: GB-PFIZER INC-GBWYE616622NOV06

PATIENT
  Age: 73 Year
  Sex: Male
  Weight: 69 kg

DRUGS (4)
  1. IBUPROFEN [Suspect]
     Dosage: 400 MG, 3X/DAY
     Route: 048
     Dates: start: 20061005, end: 20061017
  2. DEXAMETHASONE [Concomitant]
     Dosage: 2 MG, 1X/DAY
     Route: 048
     Dates: start: 20061005
  3. FUROSEMIDE [Concomitant]
     Dosage: 40 MG, 1X/DAY
     Route: 048
  4. MOVICOL [Concomitant]
     Dosage: UNK
     Route: 048
     Dates: start: 20061005, end: 20061017

REACTIONS (1)
  - Large intestine perforation [Recovering/Resolving]
